FAERS Safety Report 23621142 (Version 1)
Quarter: 2024Q1

REPORT INFORMATION
  Report Type: Spontaneous
  Country: US (occurrence: US)
  Receive Date: 20240312
  Receipt Date: 20240312
  Transmission Date: 20240410
  Serious: Yes (Other)
  Sender: FDA-Public Use
  Company Number: US-TEVA-VS-3168296

PATIENT
  Age: 59 Year
  Sex: Male
  Weight: 205 kg

DRUGS (19)
  1. HYDROCHLOROTHIAZIDE\VALSARTAN [Suspect]
     Active Substance: HYDROCHLOROTHIAZIDE\VALSARTAN
     Indication: Hypertension
     Dosage: DOSAGE: 80/12.5 MG
     Route: 065
     Dates: start: 20180417, end: 20180521
  2. OMEPRAZOLE [Concomitant]
     Active Substance: OMEPRAZOLE
     Indication: Gastrooesophageal reflux disease
  3. SERTRALINE [Concomitant]
     Active Substance: SERTRALINE HYDROCHLORIDE
     Indication: Depression
  4. ATORVASTATIN CALCIUM [Concomitant]
     Active Substance: ATORVASTATIN CALCIUM
     Indication: Blood cholesterol increased
  5. DICLOFENAC SODIUM [Concomitant]
     Active Substance: DICLOFENAC\DICLOFENAC SODIUM
     Indication: Arthralgia
     Dosage: TOPICAL GEL
  6. Skyrizi Taltz [Concomitant]
     Indication: Psoriasis
  7. LIDEX [Concomitant]
     Active Substance: FLUOCINONIDE
     Indication: Psoriasis
     Dosage: 0.05 %
  8. MAGNESIUM [Concomitant]
     Active Substance: MAGNESIUM
     Dates: start: 2008
  9. CALCIUM [Concomitant]
     Active Substance: CALCIUM
     Dosage: 600 MG/1 DAY
     Dates: start: 2007
  10. FISH OIL [Concomitant]
     Active Substance: FISH OIL
     Dosage: 1200 MG/  1 DAY
     Dates: start: 2015
  11. v + D [Concomitant]
     Dosage: 1000 UNIT
     Dates: start: 2007
  12. COENZYME Q10 [Concomitant]
     Active Substance: DIETARY SUPPLEMENT\UBIDECARENONE
     Dosage: 200 MG / 1 DAY
     Dates: start: 2010
  13. ASPIRIN [Concomitant]
     Active Substance: ASPIRIN
     Dates: start: 2007
  14. VITAMIN B12 [Concomitant]
     Active Substance: CYANOCOBALAMIN
     Dosage: 6.24 MCG 1/DAY
     Dates: start: 2008
  15. HYDROCHLOROTHIAZIDE\VALSARTAN [Suspect]
     Active Substance: HYDROCHLOROTHIAZIDE\VALSARTAN
     Indication: Hypertension
     Dosage: 80/12.5 MG
     Route: 065
     Dates: start: 20180417, end: 20180721
  16. DIOVAN [Suspect]
     Active Substance: VALSARTAN
     Indication: Hypertension
     Route: 065
     Dates: start: 20130715, end: 20140207
  17. DIOVAN [Suspect]
     Active Substance: VALSARTAN
     Indication: Hypertension
     Route: 065
     Dates: start: 20140225, end: 20140511
  18. HYDROCHLOROTHIAZIDE\VALSARTAN [Suspect]
     Active Substance: HYDROCHLOROTHIAZIDE\VALSARTAN
     Indication: Hypertension
     Route: 065
     Dates: start: 20150331, end: 20171231
  19. HYDROCHLOROTHIAZIDE\VALSARTAN [Suspect]
     Active Substance: HYDROCHLOROTHIAZIDE\VALSARTAN
     Indication: Hypertension
     Dosage: 80/12/5 MG
     Route: 065
     Dates: start: 20180123, end: 20180420

REACTIONS (5)
  - Prostate cancer [Unknown]
  - Incontinence [Unknown]
  - Erectile dysfunction [Unknown]
  - Depression [Unknown]
  - Dermatitis contact [Unknown]

NARRATIVE: CASE EVENT DATE: 20211123
